FAERS Safety Report 4960265-4 (Version None)
Quarter: 2006Q1

REPORT INFORMATION
  Report Type: 
  Country: None (occurrence: None)
  Receive Date: 20060328
  Receipt Date: 20060315
  Transmission Date: 20060701
  Serious: Yes (Other)
  Sender: FDA-Public Use
  Company Number: 2006036614

PATIENT
  Sex: Male

DRUGS (4)
  1. PHENYTOIN SODIUM [Suspect]
     Indication: ILL-DEFINED DISORDER
  2. VALPROATE SODIUM [Concomitant]
  3. KEPPRA [Concomitant]
  4. LAMOTRIGINE [Concomitant]

REACTIONS (1)
  - STAPHYLOCOCCAL INFECTION [None]
